FAERS Safety Report 4522683-8 (Version None)
Quarter: 2004Q4

REPORT INFORMATION
  Report Type: 
  Country: None (occurrence: None)
  Receive Date: 20041207
  Receipt Date: 20041122
  Transmission Date: 20050328
  Serious: Yes (Hospitalization)
  Sender: FDA-Public Use
  Company Number: 2004CG02334

PATIENT
  Age: 47 Year
  Sex: Male

DRUGS (4)
  1. MARCAINE [Suspect]
     Indication: SPINAL ANAESTHESIA
     Dosage: 13.5 MG ONCE IT
     Route: 037
     Dates: start: 20041026, end: 20041026
  2. HYPNOVEL [Concomitant]
  3. CEFAZOLIN SODIUM [Concomitant]
  4. ATROPINE [Concomitant]

REACTIONS (3)
  - ANAESTHETIC COMPLICATION [None]
  - EPILEPSY [None]
  - URINARY INCONTINENCE [None]
